FAERS Safety Report 8536976-0 (Version None)
Quarter: 2012Q3

REPORT INFORMATION
  Report Type: 
  Country: None (occurrence: None)
  Receive Date: 20120725
  Receipt Date: 20120713
  Transmission Date: 20120928
  Serious: Yes (Disabling)
  Sender: FDA-Public Use
  Company Number: GB-TEVA-348239ISR

PATIENT
  Age: 62 Year
  Sex: Female
  Weight: 57.15 kg

DRUGS (2)
  1. LEVOTHYROXINE SODIUM [Suspect]
     Indication: HYPOTHYROIDISM
  2. LEVOTHYROXINE SODIUM [Suspect]
     Indication: HYPOTHYROIDISM
     Route: 048
     Dates: start: 20060101, end: 20120501

REACTIONS (3)
  - DIPLOPIA [None]
  - VISUAL IMPAIRMENT [None]
  - MIGRAINE [None]
